FAERS Safety Report 5215469-2 (Version None)
Quarter: 2007Q1

REPORT INFORMATION
  Report Type: 
  Country: None (occurrence: None)
  Receive Date: 20070119
  Receipt Date: 20070119
  Transmission Date: 20070707
  Serious: Yes (Other)
  Sender: FDA-Public Use
  Company Number: None

PATIENT
  Age: 74 Year
  Sex: Male

DRUGS (2)
  1. LEVAQUIN [Suspect]
     Indication: OTITIS MEDIA
     Dosage: 500 MG ONCE DAILY
     Dates: start: 20061025
  2. LEVAQUIN [Suspect]
     Indication: OTITIS MEDIA
     Dosage: 500 MG ONCE DAILY
     Dates: start: 20061104

REACTIONS (2)
  - OEDEMA PERIPHERAL [None]
  - SWELLING FACE [None]
